FAERS Safety Report 9537917 (Version 1)
Quarter: 2013Q3

REPORT INFORMATION
  Report Type: Spontaneous
  Country: US (occurrence: US)
  Receive Date: 20130919
  Receipt Date: 20130919
  Transmission Date: 20140515
  Serious: Yes (Hospitalization, Other)
  Sender: FDA-Public Use
  Company Number: GXBR2013US001693

PATIENT
  Age: 66 Year
  Sex: Female

DRUGS (2)
  1. LORAZEPAM ACTAVIS 0.5MG [Suspect]
     Indication: AFFECTIVE DISORDER
     Dosage: UNK MG, UNK
     Route: 048
  2. PRILOSEC [Suspect]
     Indication: GASTROOESOPHAGEAL REFLUX DISEASE
     Dosage: UNK MG, UNK
     Route: 048

REACTIONS (2)
  - Dysarthria [Unknown]
  - Drug interaction [Unknown]
